FAERS Safety Report 16211790 (Version 1)
Quarter: 2019Q2

REPORT INFORMATION
  Report Type: Spontaneous
  Country: US (occurrence: US)
  Receive Date: 20190417
  Receipt Date: 20190417
  Transmission Date: 20190711
  Serious: Yes (Other)
  Sender: FDA-Public Use
  Company Number: None

PATIENT
  Age: 57 Year
  Sex: Female
  Weight: 82.35 kg

DRUGS (3)
  1. CLARITIN [Concomitant]
     Active Substance: LORATADINE
  2. VITAMIN D [Concomitant]
     Active Substance: VITAMIN D NOS
  3. PAREMYD [Suspect]
     Active Substance: HYDROXYAMPHETAMINE HYDROBROMIDE\TROPICAMIDE
     Indication: PUPIL DILATION PROCEDURE
     Dates: start: 20190403, end: 20190403

REACTIONS (6)
  - Nasal inflammation [None]
  - Cough [None]
  - Wheezing [None]
  - Tachycardia [None]
  - Pruritus [None]
  - Flushing [None]

NARRATIVE: CASE EVENT DATE: 20190403
